FAERS Safety Report 7284927-1 (Version None)
Quarter: 2011Q1

REPORT INFORMATION
  Report Type: 
  Country: None (occurrence: None)
  Receive Date: 20110210
  Receipt Date: 20110204
  Transmission Date: 20110831
  Serious: Yes (Other)
  Sender: FDA-Public Use
  Company Number: US-BAYER-2011-012565

PATIENT
  Age: 24 Year
  Sex: Female

DRUGS (1)
  1. YASMIN [Suspect]
     Indication: PRODUCT USED FOR UNKNOWN INDICATION
     Dosage: UNK

REACTIONS (6)
  - CYSTITIS INTERSTITIAL [None]
  - PELVIC PAIN [None]
  - DIZZINESS [None]
  - HEADACHE [None]
  - BLOOD POTASSIUM INCREASED [None]
  - PALPITATIONS [None]
